FAERS Safety Report 25856004 (Version 1)
Quarter: 2025Q3

REPORT INFORMATION
  Report Type: Spontaneous
  Country: US (occurrence: US)
  Receive Date: 20250928
  Receipt Date: 20250928
  Transmission Date: 20251020
  Serious: Yes (Other)
  Sender: ALEXION PHARMACEUTICALS
  Company Number: US-AstraZeneca-CH-00958010A

PATIENT
  Sex: Female

DRUGS (1)
  1. BREZTRI [Suspect]
     Active Substance: BUDESONIDE\FORMOTEROL\GLYCOPYRROLATE
     Route: 065

REACTIONS (7)
  - Cough [Unknown]
  - Dysphonia [Unknown]
  - Dry mouth [Unknown]
  - Urinary retention [Unknown]
  - Incorrect dose administered [Unknown]
  - Dyspnoea [Unknown]
  - Condition aggravated [Unknown]
